FAERS Safety Report 15186655 (Version 2)
Quarter: 2019Q1

REPORT INFORMATION
  Report Type: Report from Study
  Country: US (occurrence: US)
  Receive Date: 20180723
  Receipt Date: 20190130
  Transmission Date: 20190417
  Serious: No
  Sender: FDA-Public Use
  Company Number: US-EXELIXIS-CABO-17011548

PATIENT
  Age: 66 Year
  Sex: Male

DRUGS (13)
  1. COMBIVENT [Concomitant]
     Active Substance: ALBUTEROL SULFATE\IPRATROPIUM BROMIDE
  2. HYDROCODONE [Concomitant]
     Active Substance: HYDROCODONE
  3. TYLENOL [Concomitant]
     Active Substance: ACETAMINOPHEN
  4. OMEPRAZOLE. [Concomitant]
     Active Substance: OMEPRAZOLE
  5. SEROQUEL [Concomitant]
     Active Substance: QUETIAPINE FUMARATE
  6. METRONIDAZOLE. [Concomitant]
     Active Substance: METRONIDAZOLE
  7. CABOMETYX [Suspect]
     Active Substance: CABOZANTINIB S-MALATE
     Indication: RENAL CANCER
     Dosage: 60 MG, QD
     Route: 048
     Dates: start: 20171116
  8. CLINDAMYCIN. [Concomitant]
     Active Substance: CLINDAMYCIN
  9. EMLA [Concomitant]
     Active Substance: LIDOCAINE\PRILOCAINE
  10. MS CONTIN [Concomitant]
     Active Substance: MORPHINE SULFATE
  11. KETOCONAZOLE. [Concomitant]
     Active Substance: KETOCONAZOLE
  12. DEXAMETHASONE. [Concomitant]
     Active Substance: DEXAMETHASONE
  13. LEXAPRO [Concomitant]
     Active Substance: ESCITALOPRAM OXALATE

REACTIONS (4)
  - Pain [Unknown]
  - Dry skin [Unknown]
  - Skin ulcer [Unknown]
  - Skin fissures [Unknown]

NARRATIVE: CASE EVENT DATE: 20171123
